FAERS Safety Report 8565993-X (Version None)
Quarter: 2012Q3

REPORT INFORMATION
  Report Type: 
  Country: None (occurrence: None)
  Receive Date: 20120803
  Receipt Date: 20111011
  Transmission Date: 20120928
  Serious: No
  Sender: FDA-Public Use
  Company Number: US-ABBOTT-11P-163-0863318-00

PATIENT
  Sex: Male
  Weight: 109.87 kg

DRUGS (4)
  1. TERAZOSIN HYDROCHLORIDE [Concomitant]
     Indication: PROSTATOMEGALY
  2. DILTIAZEM [Concomitant]
     Indication: HYPERTENSION
  3. VITAMIN TAB [Concomitant]
     Indication: PRODUCT USED FOR UNKNOWN INDICATION
  4. NIASPAN [Suspect]
     Indication: BLOOD CHOLESTEROL INCREASED
     Dates: start: 20110926

REACTIONS (3)
  - DYSURIA [None]
  - POLLAKIURIA [None]
  - NOCTURIA [None]
